FAERS Safety Report 7683905-8 (Version None)
Quarter: 2011Q3

REPORT INFORMATION
  Report Type: 
  Country: None (occurrence: None)
  Receive Date: 20110815
  Receipt Date: 20110811
  Transmission Date: 20111222
  Serious: Yes (Hospitalization, Other)
  Sender: FDA-Public Use
  Company Number: JP-PFIZER INC-2011116471

PATIENT
  Age: 79 Year
  Sex: Female
  Weight: 49.95 kg

DRUGS (6)
  1. PLAVIX [Concomitant]
     Dosage: 75 MG, 1X/DAY
     Route: 048
  2. VERAPAMIL HCL [Concomitant]
     Dosage: 40 MG, 2X/DAY
     Route: 048
  3. LIPITOR [Suspect]
     Indication: HYPERLIPIDAEMIA
     Dosage: 5 MG, 1X/DAY
     Route: 048
     Dates: end: 20110407
  4. MECOBAMIDE [Concomitant]
     Dosage: 1000 UG, 2X/DAY
     Route: 048
  5. NEUQUINON [Concomitant]
     Dosage: 10 MG, 2X/DAY
     Route: 048
  6. ZITHROMAX [Suspect]
     Indication: NASOPHARYNGITIS
     Dosage: 500 MG, 1X/DAY
     Route: 048
     Dates: start: 20110403, end: 20110405

REACTIONS (2)
  - DRUG INTERACTION [None]
  - RHABDOMYOLYSIS [None]
